FAERS Safety Report 20087146 (Version 2)
Quarter: 2021Q4

REPORT INFORMATION
  Report Type: Spontaneous
  Country: DE (occurrence: DE)
  Receive Date: 20211118
  Receipt Date: 20211123
  Transmission Date: 20220304
  Serious: Yes (Hospitalization)
  Sender: FDA-Public Use
  Company Number: DE-ADRED-07297-01

PATIENT
  Age: 37 Year
  Sex: Male
  Weight: 118 kg

DRUGS (12)
  1. TORSEMIDE [Suspect]
     Active Substance: TORSEMIDE
     Indication: Product used for unknown indication
     Dosage: 10 MILLIGRAM, QD, 10 MG, 1-0-0-0, TABLETTEN
     Route: 048
  2. LEVOMETHADONE HYDROCHLORIDE [Suspect]
     Active Substance: LEVOMETHADONE HYDROCHLORIDE
     Indication: Product used for unknown indication
     Dosage: 5 MILLIGRAM PER MILLILITRE, 5 MG/ML, 14-0-0-0, L?SUNG
     Route: 048
  3. ELIQUIS [Suspect]
     Active Substance: APIXABAN
     Indication: Product used for unknown indication
     Dosage: 5 MILLIGRAM, BID, 5 MG, 1-0-1-0, TABLETTEN
     Route: 048
  4. PANTOPRAZOLE [Concomitant]
     Active Substance: PANTOPRAZOLE
     Dosage: 40 MILLIGRAM, QD, 40 MG, 1-0-0-0, TABLETTEN
     Route: 048
  5. LEVOTHYROXINE SODIUM [Concomitant]
     Active Substance: LEVOTHYROXINE SODIUM
     Dosage: 125 MICROGRAM, QD, 125 ?G, 1-0-0-0, TABLETTEN
     Route: 048
  6. QUETIAPINE [Concomitant]
     Active Substance: QUETIAPINE
     Dosage: 50 MILLIGRAM, 50 MG, 0-0-0-3, TABLETTEN
     Route: 048
  7. PREGABALIN [Concomitant]
     Active Substance: PREGABALIN
     Dosage: 100 MILLIGRAM,100 MG, 3-0-3-0, KAPSELN
     Route: 048
  8. LEVETIRACETAM [Concomitant]
     Active Substance: LEVETIRACETAM
     Dosage: 500 MILLIGRAM, BID, 500 MG, 1-0-1-0, TABLETTEN
     Route: 048
  9. RAMIPRIL [Concomitant]
     Active Substance: RAMIPRIL
     Dosage: 2.5 MILLIGRAM, BID, 2.5 MG, 1-0-1-0, TABLETTEN
     Route: 048
  10. OPIPRAMOL [Concomitant]
     Active Substance: OPIPRAMOL
     Dosage: 100 MILLIGRAM, QD, 100 MG, 0-0-1-0, TABLETTEN
     Route: 048
  11. ATORVASTATIN [Concomitant]
     Active Substance: ATORVASTATIN
     Dosage: 10 MILLIGRAM, QD, 10 MG, 0-0-1-0, TABLETTEN
     Route: 048
  12. METOPROLOL [Concomitant]
     Active Substance: METOPROLOL
     Dosage: 50 MILLIGRAM, BID, 50 MG, 1-0-1-0, TABLETTEN
     Route: 048

REACTIONS (2)
  - Clot retraction [Recovering/Resolving]
  - Constipation [Unknown]
